FAERS Safety Report 9347346 (Version 2)
Quarter: 2013Q2

REPORT INFORMATION
  Report Type: Report from Study
  Country: US (occurrence: US)
  Receive Date: 20130613
  Receipt Date: 20130621
  Transmission Date: 20140414
  Serious: Yes (Other)
  Sender: FDA-Public Use
  Company Number: US-US-EMD SERONO, INC.-7217000

PATIENT
  Sex: Female
  Weight: 45 kg

DRUGS (1)
  1. REBIF [Suspect]
     Indication: MULTIPLE SCLEROSIS
     Route: 058
     Dates: start: 20091203

REACTIONS (4)
  - Oesophageal stenosis [Recovering/Resolving]
  - Influenza [Not Recovered/Not Resolved]
  - Multiple sclerosis [Unknown]
  - Multiple sclerosis relapse [Unknown]
